FAERS Safety Report 5772293-X (Version None)
Quarter: 2008Q2

REPORT INFORMATION
  Report Type: 
  Country: None (occurrence: None)
  Receive Date: 20080613
  Receipt Date: 20080610
  Transmission Date: 20081010
  Serious: Yes (Death, Other)
  Sender: FDA-Public Use
  Company Number: PHHY2008BR08474

PATIENT
  Age: 69 Year
  Sex: Male

DRUGS (1)
  1. DIOVAN [Suspect]
     Dosage: 320 MG, UNK
     Route: 048

REACTIONS (5)
  - DIABETES MELLITUS [None]
  - MULTI-ORGAN FAILURE [None]
  - PNEUMONIA [None]
  - SEPTIC SHOCK [None]
  - SHOCK [None]
